FAERS Safety Report 6770016-9 (Version None)
Quarter: 2010Q2

REPORT INFORMATION
  Report Type: 
  Country: None (occurrence: None)
  Receive Date: 20100615
  Receipt Date: 20100607
  Transmission Date: 20101027
  Serious: Yes (Hospitalization)
  Sender: FDA-Public Use
  Company Number: US-JNJFOC-20100503083

PATIENT
  Age: 3 Year
  Sex: Male
  Weight: 16.78 kg

DRUGS (3)
  1. MOTRIN [Suspect]
     Indication: HEADACHE
     Route: 048
  2. MOTRIN [Suspect]
     Indication: PYREXIA
     Route: 048
  3. MOTRIN [Suspect]
     Indication: INFLUENZA
     Route: 048

REACTIONS (5)
  - CONTUSION [None]
  - INTENTIONAL DRUG MISUSE [None]
  - PETECHIAE [None]
  - PLATELET COUNT DECREASED [None]
  - PRODUCT QUALITY ISSUE [None]
